FAERS Safety Report 15027530 (Version 1)
Quarter: 2018Q2

REPORT INFORMATION
  Report Type: Spontaneous
  Country: US (occurrence: US)
  Receive Date: 20180525
  Receipt Date: 20180525
  Transmission Date: 20180711
  Serious: Yes (Other)
  Sender: FDA-Public Use
  Company Number: None

PATIENT
  Age: 66 Year
  Sex: Female
  Weight: 84.82 kg

DRUGS (6)
  1. OXYBUTYNIN ER 10MG TABS [Suspect]
     Active Substance: OXYBUTYNIN
     Indication: BLOOD URINE PRESENT
     Dosage: ?          QUANTITY:1 DF DOSAGE FORM;?
     Route: 048
     Dates: start: 20171215, end: 20180108
  2. MELOXICAM. [Concomitant]
     Active Substance: MELOXICAM
  3. SIMVASTATIN. [Concomitant]
     Active Substance: SIMVASTATIN
  4. VITAMIN D3 [Concomitant]
     Active Substance: CHOLECALCIFEROL
  5. BIOTIN [Concomitant]
     Active Substance: BIOTIN
  6. LUTEIN [Concomitant]
     Active Substance: LUTEIN

REACTIONS (4)
  - Dysphagia [None]
  - Dyspnoea [None]
  - Alopecia [None]
  - Burning sensation [None]

NARRATIVE: CASE EVENT DATE: 20180108
